FAERS Safety Report 21622086 (Version 1)
Quarter: 2022Q4

REPORT INFORMATION
  Report Type: Spontaneous
  Country: JP (occurrence: JP)
  Receive Date: 20221121
  Receipt Date: 20221121
  Transmission Date: 20230113
  Serious: Yes (Life-Threatening, Other)
  Sender: FDA-Public Use
  Company Number: JP-MYLANLABS-2022M1122344

PATIENT
  Age: 71 Year
  Sex: Male
  Weight: 64.3 kg

DRUGS (9)
  1. LEVOFLOXACIN [Suspect]
     Active Substance: LEVOFLOXACIN
     Indication: Vital dye staining cornea
     Dosage: UNK
     Route: 047
     Dates: start: 2017
  2. LEVOFLOXACIN [Suspect]
     Active Substance: LEVOFLOXACIN
     Dosage: UNK
     Route: 047
     Dates: start: 20201007, end: 20201007
  3. LEVOFLOXACIN [Suspect]
     Active Substance: LEVOFLOXACIN
     Dosage: UNK
     Route: 047
  4. LEVOFLOXACIN [Suspect]
     Active Substance: LEVOFLOXACIN
     Dosage: UNK
     Route: 047
     Dates: start: 20220412, end: 20220412
  5. BENOXINATE HYDROCHLORIDE [Concomitant]
     Active Substance: BENOXINATE HYDROCHLORIDE
     Indication: Vital dye staining cornea
     Dosage: UNK
     Route: 047
     Dates: start: 2017
  6. BENOXINATE HYDROCHLORIDE [Concomitant]
     Active Substance: BENOXINATE HYDROCHLORIDE
     Dosage: UNK
     Route: 047
     Dates: start: 20201007, end: 20201007
  7. BENOXINATE HYDROCHLORIDE [Concomitant]
     Active Substance: BENOXINATE HYDROCHLORIDE
     Dosage: UNK
     Route: 047
  8. BENOXINATE HYDROCHLORIDE [Concomitant]
     Active Substance: BENOXINATE HYDROCHLORIDE
     Dosage: UNK
     Route: 047
     Dates: start: 20220412, end: 20220412
  9. Fluores [Concomitant]
     Indication: Vital dye staining cornea
     Dosage: UNK
     Route: 047
     Dates: start: 20220412, end: 20220412

REACTIONS (11)
  - Anaphylactic shock [Not Recovered/Not Resolved]
  - Loss of consciousness [Unknown]
  - Visual impairment [Unknown]
  - Hyperhidrosis [Unknown]
  - Dizziness [Unknown]
  - Vomiting [Unknown]
  - Feeling cold [Unknown]
  - Oropharyngeal pain [Unknown]
  - Abdominal pain [Unknown]
  - Thirst [Unknown]
  - Off label use [Unknown]

NARRATIVE: CASE EVENT DATE: 20201007
